FAERS Safety Report 9341082 (Version 1)
Quarter: 2013Q2

REPORT INFORMATION
  Report Type: Spontaneous
  Country: FR (occurrence: FR)
  Receive Date: 20130610
  Receipt Date: 20130610
  Transmission Date: 20140414
  Serious: Yes (Life-Threatening, Hospitalization)
  Sender: FDA-Public Use
  Company Number: FR-ASTRAZENECA-2013SE41004

PATIENT
  Age: 17163 Day
  Sex: Female

DRUGS (9)
  1. XEROQUEL [Suspect]
     Route: 048
  2. XEROQUEL [Suspect]
     Route: 048
     Dates: start: 20130122, end: 20130122
  3. BROMAZEPAM [Suspect]
     Route: 048
     Dates: start: 20130122, end: 20130122
  4. DIAZEPAM [Suspect]
     Route: 048
  5. DIAZEPAM [Suspect]
     Route: 048
     Dates: start: 20130122, end: 20130122
  6. NOCTAMIDE [Concomitant]
     Route: 048
  7. TRANXENE [Concomitant]
     Dosage: 1 DF IN THE MORNING AND 1 DF IN THE EVENING
     Route: 048
  8. LAMICTAL [Concomitant]
     Route: 048
  9. VENLAFAXINE [Concomitant]
     Route: 048

REACTIONS (4)
  - Coma [Recovered/Resolved]
  - Toxicity to various agents [Unknown]
  - Pneumonia aspiration [Recovering/Resolving]
  - Hypotension [Unknown]
